FAERS Safety Report 10257633 (Version 1)
Quarter: 2014Q2

REPORT INFORMATION
  Report Type: Spontaneous
  Country: IT (occurrence: None)
  Receive Date: 20140620
  Receipt Date: 20140620
  Transmission Date: 20141212
  Serious: Yes (Hospitalization)
  Sender: FDA-Public Use
  Company Number: 2392390

PATIENT
  Age: 59 Year
  Sex: Female

DRUGS (10)
  1. PIPERACILLIN AND TAZOBACTAM [Suspect]
     Indication: FEBRILE NEUTROPENIA
     Dates: start: 200908
  2. RITUXIMAB [Suspect]
     Indication: NON-HODGKIN^S LYMPHOMA
     Dosage: CYCLICAL
     Dates: start: 2009
  3. CYCLOPHOSPHAMIDE [Suspect]
     Indication: NON-HODGKIN^S LYMPHOMA
     Dosage: CYCLICAL
     Dates: start: 2009
  4. DOXORUBICIN [Suspect]
     Indication: NON-HODGKIN^S LYMPHOMA
     Dosage: CYCLICAL
     Dates: start: 2009
  5. VINCRISTINE [Suspect]
     Indication: NON-HODGKIN^S LYMPHOMA
     Dosage: CYCLICAL
     Dates: start: 2009
  6. PREDNISONE [Suspect]
     Indication: NON-HODGKIN^S LYMPHOMA
     Dosage: CYCLICAL
     Dates: start: 2009
  7. CHEMOTHERAPEUTICS [Suspect]
     Indication: ANAL CANCER
     Dates: start: 2010
  8. THERAPEUTIC RADIOPHARMACEUTICALS [Suspect]
     Indication: ANAL CANCER
     Dosage: CYCLICAL
     Dates: start: 2010
  9. AMIKACIN [Suspect]
     Indication: FEBRILE NEUTROPENIA
     Dates: start: 200908
  10. LEVOFLOXACIN [Suspect]
     Indication: RESPIRATORY TRACT INFECTION
     Route: 048
     Dates: start: 201106

REACTIONS (1)
  - Meningitis pneumococcal [None]
